FAERS Safety Report 24559249 (Version 2)
Quarter: 2024Q4

REPORT INFORMATION
  Report Type: Report from Study
  Country: US (occurrence: US)
  Receive Date: 20241029
  Receipt Date: 20241108
  Transmission Date: 20250115
  Serious: Yes (Hospitalization)
  Sender: pharmaAND
  Company Number: US-Pharmaand-2024001098

PATIENT
  Sex: Female
  Weight: 52.2 kg

DRUGS (6)
  1. RUBRACA [Suspect]
     Active Substance: RUCAPARIB CAMSYLATE
     Indication: Ovarian cancer
     Dosage: 600MG ORALLY TWICE DAILY
     Route: 048
     Dates: start: 20240520
  2. CORDYCEPS SUPPLEMENT [Concomitant]
     Indication: Product used for unknown indication
  3. MUSHROOM AGARICUS SUPPLEMENT [Concomitant]
     Indication: Product used for unknown indication
  4. VITAMINS [Concomitant]
     Active Substance: VITAMINS
     Indication: Product used for unknown indication
  5. BERBERINE [Concomitant]
     Active Substance: BERBERINE
     Indication: Product used for unknown indication
  6. VITAMIN C [Concomitant]
     Active Substance: ASCORBIC ACID
     Indication: Product used for unknown indication

REACTIONS (1)
  - Cardiac disorder [Unknown]
